FAERS Safety Report 4516767-8 (Version None)
Quarter: 2004Q4

REPORT INFORMATION
  Report Type: 
  Country: None (occurrence: None)
  Receive Date: 20041005
  Receipt Date: 20040205
  Transmission Date: 20050328
  Serious: Yes (Other)
  Sender: FDA-Public Use
  Company Number: K200400185

PATIENT
  Age: 45 Year
  Sex: Male

DRUGS (1)
  1. SONATA [Suspect]
     Dosage: SNORTING 150 MG TO 500 MG, NASAL
     Route: 045
     Dates: end: 20040201

REACTIONS (3)
  - DRUG ABUSER [None]
  - DRUG DEPENDENCE [None]
  - OVERDOSE [None]
